FAERS Safety Report 23375294 (Version 3)
Quarter: 2024Q1

REPORT INFORMATION
  Report Type: Spontaneous
  Country: DE (occurrence: DE)
  Receive Date: 20240106
  Receipt Date: 20240306
  Transmission Date: 20240409
  Serious: Yes (Other)
  Sender: FDA-Public Use
  Company Number: DE-Ascend Therapeutics US, LLC-2149213

PATIENT
  Age: 59 Year
  Sex: Female
  Weight: 64 kg

DRUGS (4)
  1. ESTROGEL [Suspect]
     Active Substance: ESTRADIOL
     Route: 048
     Dates: start: 2018
  2. PROGESTERONE [Suspect]
     Active Substance: PROGESTERONE
     Route: 048
     Dates: start: 2018
  3. ESTRADIOL HEMIHYDRATE [Suspect]
     Active Substance: ESTRADIOL HEMIHYDRATE
     Route: 048
  4. ESTRADIOL [Suspect]
     Active Substance: ESTRADIOL
     Route: 048
     Dates: start: 2018

REACTIONS (2)
  - Carotid arteriosclerosis [Unknown]
  - Off label use [Unknown]
